FAERS Safety Report 7956136-1 (Version None)
Quarter: 2011Q4

REPORT INFORMATION
  Report Type: 
  Country: None (occurrence: None)
  Receive Date: 20111116
  Receipt Date: 20111102
  Transmission Date: 20120403
  Serious: Yes (Hospitalization)
  Sender: FDA-Public Use
  Company Number: 11-2738

PATIENT
  Age: 16 Year
  Sex: Male

DRUGS (3)
  1. BOTULINUM TOXIN TYPE A [Suspect]
     Indication: BRUXISM
     Dosage: (100 IU,1 IN 1 TOTAL), (1 IN 1 TOTAL),  5 MTH PRIOR TO 2ND INJECTION   (1 DAYS)
  2. BOTULINUM TOXIN TYPE A [Suspect]
     Indication: SALIVARY HYPERSECRETION
     Dosage: (100 IU,1 IN 1 TOTAL), (1 IN 1 TOTAL),  5 MTH PRIOR TO 2ND INJECTION   (1 DAYS)
  3. MIDAZOLAM(MIDAZOLAM)(MIDAZOLAM) [Concomitant]

REACTIONS (2)
  - SALIVARY GLAND CALCULUS [None]
  - SIALOADENITIS [None]
